FAERS Safety Report 5193543-7 (Version None)
Quarter: 2006Q4

REPORT INFORMATION
  Report Type: 
  Country: None (occurrence: None)
  Receive Date: 20061228
  Receipt Date: 20060713
  Transmission Date: 20070319
  Serious: No
  Sender: FDA-Public Use
  Company Number: PAR-4259-PC

PATIENT
  Age: 80 Year
  Sex: Male
  Weight: 79.5 kg

DRUGS (9)
  1. FLUTICASONE PROPIONATE [Suspect]
     Indication: NASAL CONGESTION
     Route: 045
     Dates: start: 20060701, end: 20060701
  2. DIOVAN [Concomitant]
  3. ISOSORBIDE DINITRATE [Concomitant]
  4. LIPITOR [Concomitant]
  5. PRILOSEC [Concomitant]
  6. ASPIRIN [Concomitant]
  7. UROXATRAL [Concomitant]
  8. VITAMINS [Concomitant]
  9. MUCINEX [Concomitant]

REACTIONS (3)
  - ARRHYTHMIA [None]
  - PALPITATIONS [None]
  - PHARMACEUTICAL PRODUCT COMPLAINT [None]
